FAERS Safety Report 8137899-1 (Version None)
Quarter: 2012Q1

REPORT INFORMATION
  Report Type: 
  Country: None (occurrence: None)
  Receive Date: 20120215
  Receipt Date: 20120213
  Transmission Date: 20120608
  Serious: No
  Sender: FDA-Public Use
  Company Number: US-PFIZER INC-2012038901

PATIENT
  Sex: Female

DRUGS (1)
  1. NEURONTIN [Suspect]
     Indication: RESTLESS LEGS SYNDROME
     Dosage: 300 MG, 1X/DAY
     Route: 048
     Dates: start: 20080301

REACTIONS (1)
  - BLOOD CHOLESTEROL INCREASED [None]
